FAERS Safety Report 7816335-6 (Version None)
Quarter: 2011Q4

REPORT INFORMATION
  Report Type: 
  Country: None (occurrence: None)
  Receive Date: 20111017
  Receipt Date: 20111007
  Transmission Date: 20120403
  Serious: Yes (Hospitalization)
  Sender: FDA-Public Use
  Company Number: US-BIOGENIDEC-2011BI006063

PATIENT
  Age: 22 Year
  Sex: Female

DRUGS (3)
  1. TYSABRI [Suspect]
     Indication: MULTIPLE SCLEROSIS
     Route: 042
     Dates: start: 20071126, end: 20110131
  2. AMPICILLIN SODIUM [Concomitant]
     Indication: BACTERIURIA
     Dates: start: 20110101, end: 20110101
  3. MULTI-VITAMINS [Concomitant]

REACTIONS (3)
  - GESTATIONAL HYPERTENSION [None]
  - PREGNANCY [None]
  - FOETAL DISTRESS SYNDROME [None]
